FAERS Safety Report 8218496 (Version 3)
Quarter: 2012Q4

REPORT INFORMATION
  Report Type: 
  Country: US (occurrence: US)
  Receive Date: 20111101
  Receipt Date: 20120917
  Transmission Date: 20130627
  Serious: Yes (Hospitalization)
  Sender: FDA-Public Use
  Company Number: US-JNJFOC-20111010586

PATIENT
  Age: 58 None
  Sex: Female
  Weight: 116.12 kg

DRUGS (7)
  1. REMICADE [Suspect]
     Indication: RHEUMATOID ARTHRITIS
     Route: 042
     Dates: start: 20120904
  2. REMICADE [Suspect]
     Indication: RHEUMATOID ARTHRITIS
     Route: 042
     Dates: start: 2008
  3. PERCOCET [Suspect]
     Indication: PAIN
     Route: 048
     Dates: start: 201110
  4. VITAMIN D [Concomitant]
  5. JANUVIA [Concomitant]
     Indication: DIABETES MELLITUS
     Route: 048
  6. HCTZ [Concomitant]
     Indication: HYPERTENSION
     Route: 048
  7. NORVASC [Concomitant]
     Indication: HYPERTENSION
     Route: 048

REACTIONS (5)
  - Renal disorder [Not Recovered/Not Resolved]
  - Rheumatoid arthritis [Not Recovered/Not Resolved]
  - Somnolence [Not Recovered/Not Resolved]
  - Infusion related reaction [Recovered/Resolved]
  - Muscle spasms [Not Recovered/Not Resolved]
